FAERS Safety Report 22347177 (Version 2)
Quarter: 2024Q1

REPORT INFORMATION
  Report Type: Spontaneous
  Country: US (occurrence: US)
  Receive Date: 20230520
  Receipt Date: 20240131
  Transmission Date: 20240410
  Serious: Yes (Hospitalization)
  Sender: FDA-Public Use
  Company Number: US-LUOXINA-LUX-2023-US-LIT-00023

PATIENT
  Age: 18 Year
  Sex: Female
  Weight: 70.6 kg

DRUGS (26)
  1. IPRATROPIUM BROMIDE [Suspect]
     Active Substance: IPRATROPIUM BROMIDE\IPRATROPIUM BROMIDE ANHYDROUS
     Indication: COVID-19
  2. ALBUTEROL SULFATE [Suspect]
     Active Substance: ALBUTEROL SULFATE
     Indication: Cough
  3. ANAKINRA [Suspect]
     Active Substance: ANAKINRA
     Indication: COVID-19
     Dosage: INCREASED TO 300 MG IV EVERY 8 HOURS
     Route: 042
  4. ANAKINRA [Suspect]
     Active Substance: ANAKINRA
     Indication: Cough
  5. BENZODIAZEPINE [Suspect]
     Active Substance: BENZODIAZEPINE
     Indication: COVID-19
  6. CISATRACURIUM [Suspect]
     Active Substance: CISATRACURIUM
     Indication: COVID-19
  7. DEXAMETHASONE [Suspect]
     Active Substance: DEXAMETHASONE
     Indication: COVID-19
  8. DEXAMETHASONE [Suspect]
     Active Substance: DEXAMETHASONE
     Indication: Cough
  9. DEXMEDETOMIDINE [Suspect]
     Active Substance: DEXMEDETOMIDINE
     Indication: COVID-19
  10. DEXTROMETHORPHAN [Suspect]
     Active Substance: DEXTROMETHORPHAN
     Indication: COVID-19
  11. DEXTROMETHORPHAN [Suspect]
     Active Substance: DEXTROMETHORPHAN
     Indication: Staphylococcal bacteraemia
  12. FLUOXETINE [Suspect]
     Active Substance: FLUOXETINE HYDROCHLORIDE
     Indication: Product used for unknown indication
  13. GABAPENTIN [Suspect]
     Active Substance: GABAPENTIN
     Indication: COVID-19
  14. GABAPENTIN [Suspect]
     Active Substance: GABAPENTIN
     Indication: Cough
  15. LIDOCAINE [Suspect]
     Active Substance: LIDOCAINE
     Indication: COVID-19
  16. PROPOFOL [Suspect]
     Active Substance: PROPOFOL
     Indication: Cough
     Dosage: ( 90 MCG/KG/MIN) ON HD 30
  17. PROPOFOL [Suspect]
     Active Substance: PROPOFOL
     Dosage: ( 30 MCG/KG/MIN) ON HD 27
  18. PROPOFOL [Suspect]
     Active Substance: PROPOFOL
     Dosage: 35-70 MG
     Route: 040
  19. PROPOFOL [Suspect]
     Active Substance: PROPOFOL
     Dosage: 5.5 (RANGE 3-8 BOLUSES/DAY, 85 MG-325 MG/DAY)
     Route: 040
  20. ROCURONIUM BROMIDE [Suspect]
     Active Substance: ROCURONIUM BROMIDE
     Indication: COVID-19
  21. ROCURONIUM BROMIDE [Suspect]
     Active Substance: ROCURONIUM BROMIDE
     Indication: Cough
  22. REMDESIVIR [Suspect]
     Active Substance: REMDESIVIR
     Indication: COVID-19
  23. REMDESIVIR [Suspect]
     Active Substance: REMDESIVIR
     Indication: Cough
     Dosage: 100 MILLIGRAM( 100MG FOR 4 DAYS)
  24. TRAZODONE [Suspect]
     Active Substance: TRAZODONE HYDROCHLORIDE
     Indication: COVID-19
  25. TRAZODONE [Suspect]
     Active Substance: TRAZODONE HYDROCHLORIDE
     Indication: Staphylococcal bacteraemia
  26. LINEZOLID [Concomitant]
     Active Substance: LINEZOLID
     Indication: Staphylococcal bacteraemia

REACTIONS (2)
  - Drug ineffective [Unknown]
  - Off label use [Unknown]
